FAERS Safety Report 4687903-8 (Version None)
Quarter: 2005Q2

REPORT INFORMATION
  Report Type: 
  Country: None (occurrence: None)
  Receive Date: 20050610
  Receipt Date: 20050607
  Transmission Date: 20051028
  Serious: Yes (Other)
  Sender: FDA-Public Use
  Company Number: US-GLAXOSMITHKLINE-A0561619A

PATIENT
  Age: 54 Year
  Sex: Male

DRUGS (2)
  1. LAMICTAL [Suspect]
     Indication: BIPOLAR DISORDER
     Route: 048
     Dates: start: 20050104
  2. XANAX [Concomitant]

REACTIONS (5)
  - AMNESIA [None]
  - APHASIA [None]
  - HANGOVER [None]
  - HUNGER [None]
  - WEIGHT INCREASED [None]
